FAERS Safety Report 6691654-8 (Version None)
Quarter: 2010Q2

REPORT INFORMATION
  Report Type: 
  Country: None (occurrence: None)
  Receive Date: 20100422
  Receipt Date: 20090401
  Transmission Date: 20101027
  Serious: Yes (Hospitalization)
  Sender: FDA-Public Use
  Company Number: US-ASTRAZENECA-2009UW08181

PATIENT
  Age: 71 Year
  Sex: Male
  Weight: 98.4 kg

DRUGS (9)
  1. TOPROL-XL [Suspect]
     Indication: HYPERTENSION
     Route: 048
     Dates: start: 19990101
  2. PREVACID [Concomitant]
     Route: 048
  3. AVAPRO [Concomitant]
     Route: 048
  4. NORVASC [Concomitant]
     Route: 048
  5. COUMADIN [Concomitant]
     Route: 048
  6. CLONIDINE [Concomitant]
     Route: 048
  7. PLAVIX [Concomitant]
     Route: 048
  8. GLIPIZIDE [Concomitant]
     Route: 048
  9. LANTUS [Concomitant]
     Indication: DIABETES MELLITUS
     Route: 058

REACTIONS (1)
  - MYOCARDIAL INFARCTION [None]
